FAERS Safety Report 8513819-2 (Version None)
Quarter: 2012Q3

REPORT INFORMATION
  Report Type: 
  Country: None (occurrence: None)
  Receive Date: 20120705
  Receipt Date: 20120628
  Transmission Date: 20120928
  Serious: Yes (Life-Threatening)
  Sender: FDA-Public Use
  Company Number: DSA_57981_2012

PATIENT
  Sex: Female

DRUGS (1)
  1. XENAZINE [Suspect]
     Indication: DYSKINESIA
     Dosage: 1/2 TABLET THREE TIMES DAILY ORAL
     Route: 048
     Dates: start: 20110704, end: 20120619

REACTIONS (1)
  - SUICIDAL IDEATION [None]
